FAERS Safety Report 9025954 (Version 1)
Quarter: 2013Q1

REPORT INFORMATION
  Report Type: Spontaneous
  Country: IE (occurrence: IE)
  Receive Date: 20130122
  Receipt Date: 20130122
  Transmission Date: 20140127
  Serious: Yes (Death)
  Sender: FDA-Public Use
  Company Number: IE-ASTRAZENECA-2013SE04165

PATIENT
  Age: 4 Month
  Sex: Female

DRUGS (3)
  1. SYNAGIS [Suspect]
     Indication: PREMATURE BABY
     Route: 030
     Dates: start: 20121025
  2. ABIDEC [Concomitant]
  3. FERINSOL [Concomitant]

REACTIONS (1)
  - Sudden infant death syndrome [Fatal]
